FAERS Safety Report 12279080 (Version 1)
Quarter: 2016Q2

REPORT INFORMATION
  Report Type: Report from Study
  Country: DE (occurrence: DE)
  Receive Date: 20160418
  Receipt Date: 20160418
  Transmission Date: 20160815
  Serious: Yes (Hospitalization, Other)
  Sender: FDA-Public Use
  Company Number: PHHY2013DE123785

PATIENT
  Sex: Female
  Weight: 53 kg

DRUGS (10)
  1. LYRICA [Concomitant]
     Active Substance: PREGABALIN
     Indication: PRODUCT USED FOR UNKNOWN INDICATION
     Dosage: 50 MG, BID (1-0-1)
     Route: 065
     Dates: start: 2013
  2. XGEVA [Concomitant]
     Active Substance: DENOSUMAB
     Indication: PRODUCT USED FOR UNKNOWN INDICATION
     Route: 065
  3. EXEMESTANE. [Suspect]
     Active Substance: EXEMESTANE
     Indication: BREAST CANCER METASTATIC
     Dosage: 25 MG, QD (ONCE DAILY)
     Route: 048
     Dates: start: 20130925, end: 20131015
  4. PALLADON [Suspect]
     Active Substance: HYDROMORPHONE
     Indication: PRODUCT USED FOR UNKNOWN INDICATION
     Dosage: 1.3 G, 6QD
     Route: 048
     Dates: start: 2013
  5. AFINITOR [Suspect]
     Active Substance: EVEROLIMUS
     Indication: BREAST CANCER METASTATIC
     Dosage: 5 MG, QD (ONCE DAILY)
     Route: 048
     Dates: start: 20130925, end: 20131004
  6. EXEMESTANE. [Suspect]
     Active Substance: EXEMESTANE
     Dosage: 25 MG, QD (ONCE DAILY)
     Route: 048
     Dates: start: 20131022, end: 20140301
  7. NOVALGIN [Suspect]
     Active Substance: METAMIZOLE SODIUM
     Dosage: 30 GTT, QID (1-1-1-1)
     Route: 048
     Dates: start: 20131005, end: 20131014
  8. NOVALGIN [Suspect]
     Active Substance: METAMIZOLE SODIUM
     Indication: PRODUCT USED FOR UNKNOWN INDICATION
     Dosage: 500 MG, QID (1-1-1-1)
     Route: 065
     Dates: start: 2013
  9. AFINITOR [Suspect]
     Active Substance: EVEROLIMUS
     Dosage: 5 MG, QD (ONCE DAILY)
     Route: 048
     Dates: start: 20131022, end: 20140114
  10. HYDROMORPHON DURA [Suspect]
     Active Substance: HYDROMORPHONE
     Indication: PRODUCT USED FOR UNKNOWN INDICATION
     Dosage: 4 MG, TID (2-0-1)
     Route: 048
     Dates: start: 2013

REACTIONS (10)
  - Nausea [Recovered/Resolved]
  - Pain [Recovered/Resolved]
  - Oedema peripheral [Not Recovered/Not Resolved]
  - C-reactive protein increased [Recovering/Resolving]
  - Stomatitis [Recovered/Resolved]
  - Vomiting [Recovered/Resolved]
  - Hypokalaemia [Not Recovered/Not Resolved]
  - Oesophageal candidiasis [Recovered/Resolved]
  - Back pain [Recovered/Resolved]
  - Gastritis [Unknown]

NARRATIVE: CASE EVENT DATE: 20131004
